FAERS Safety Report 8949107 (Version 4)
Quarter: 2013Q2

REPORT INFORMATION
  Report Type: Report from Study
  Country: CL (occurrence: CL)
  Receive Date: 20121206
  Receipt Date: 20130613
  Transmission Date: 20140414
  Serious: Yes (Other)
  Sender: FDA-Public Use
  Company Number: CL-ROCHE-1164383

PATIENT
  Age: 42 Year
  Sex: Male
  Weight: 81 kg

DRUGS (8)
  1. PEGASYS [Suspect]
     Indication: HEPATITIS C
     Route: 058
     Dates: start: 20121116, end: 20130607
  2. PEGASYS [Suspect]
     Dosage: TREATMENT SUSPENDED
     Route: 058
     Dates: end: 20130404
  3. PEGASYS [Suspect]
     Route: 058
     Dates: start: 20130419
  4. PEGASYS [Suspect]
     Route: 058
     Dates: start: 20130426
  5. PEGASYS [Suspect]
     Route: 058
     Dates: start: 20130503
  6. PEGASYS [Suspect]
     Route: 058
     Dates: start: 20130522
  7. RIBAVIRIN [Suspect]
     Indication: HEPATITIS C
     Route: 048
     Dates: start: 20121116, end: 20130607
  8. INSULIN [Concomitant]
     Indication: DIABETES MELLITUS
     Route: 058

REACTIONS (6)
  - Platelet count decreased [Not Recovered/Not Resolved]
  - White blood cell count decreased [Not Recovered/Not Resolved]
  - Platelet count decreased [Not Recovered/Not Resolved]
  - White blood cell count decreased [Not Recovered/Not Resolved]
  - White blood cell count decreased [Not Recovered/Not Resolved]
  - Platelet count decreased [Not Recovered/Not Resolved]
